FAERS Safety Report 6182843-X (Version None)
Quarter: 2009Q2

REPORT INFORMATION
  Report Type: 
  Country: None (occurrence: None)
  Receive Date: 20090507
  Receipt Date: 20090506
  Transmission Date: 20091009
  Serious: Yes (Hospitalization)
  Sender: FDA-Public Use
  Company Number: FR-WYE-G03633809

PATIENT
  Sex: Male

DRUGS (3)
  1. ADVIL [Suspect]
     Dosage: ONE DOSE FORM
     Route: 048
     Dates: start: 20081023, end: 20081023
  2. EMLA [Concomitant]
     Dosage: UNKNOWN
     Route: 061
     Dates: start: 20081023, end: 20081023
  3. INFLUVAC [Suspect]
     Route: 030
     Dates: start: 20081023, end: 20081023

REACTIONS (2)
  - CELLULITIS [None]
  - PYREXIA [None]
